FAERS Safety Report 6968152-7 (Version None)
Quarter: 2010Q3

REPORT INFORMATION
  Report Type: 
  Country: None (occurrence: None)
  Receive Date: 20100907
  Receipt Date: 20100827
  Transmission Date: 20110219
  Serious: Yes (Death)
  Sender: FDA-Public Use
  Company Number: US-JNJFOC-20100809279

PATIENT

DRUGS (1)
  1. REMICADE [Suspect]
     Indication: GASTROINTESTINAL DISORDER
     Route: 042

REACTIONS (1)
  - DEATH [None]
